FAERS Safety Report 13995558 (Version 1)
Quarter: 2017Q3

REPORT INFORMATION
  Report Type: Report from Study
  Country: None (occurrence: BR)
  Receive Date: 20170921
  Receipt Date: 20170921
  Transmission Date: 20171128
  Serious: Yes (Disabling, Other)
  Sender: FDA-Public Use
  Company Number: BR-ABBVIE-17K-020-2104103-00

PATIENT
  Age: 44 Year
  Sex: Female
  Weight: 60 kg

DRUGS (1)
  1. HUMIRA [Suspect]
     Active Substance: ADALIMUMAB
     Indication: RHEUMATOID ARTHRITIS
     Route: 058
     Dates: start: 20170627

REACTIONS (21)
  - Blindness transient [Recovered/Resolved]
  - Gait disturbance [Recovering/Resolving]
  - Limb deformity [Not Recovered/Not Resolved]
  - Rheumatoid arthritis [Unknown]
  - Blindness transient [Not Recovered/Not Resolved]
  - Pain in jaw [Not Recovered/Not Resolved]
  - Back pain [Not Recovered/Not Resolved]
  - Arthralgia [Unknown]
  - Dizziness [Not Recovered/Not Resolved]
  - Joint range of motion decreased [Not Recovered/Not Resolved]
  - Groin pain [Recovering/Resolving]
  - Nausea [Recovered/Resolved]
  - Dysuria [Unknown]
  - Musculoskeletal pain [Recovering/Resolving]
  - Intentional product misuse [Unknown]
  - Blindness transient [Recovered/Resolved]
  - Pain [Recovering/Resolving]
  - Headache [Not Recovered/Not Resolved]
  - Therapeutic response shortened [Recovering/Resolving]
  - Anxiety [Not Recovered/Not Resolved]
  - Depression [Not Recovered/Not Resolved]

NARRATIVE: CASE EVENT DATE: 2017
